FAERS Safety Report 10145994 (Version 2)
Quarter: 2014Q2

REPORT INFORMATION
  Report Type: Report from Study
  Country: MX (occurrence: MX)
  Receive Date: 20140501
  Receipt Date: 20140501
  Transmission Date: 20141212
  Serious: Yes (Death, Other)
  Sender: FDA-Public Use
  Company Number: PHHY2013MX116753

PATIENT
  Age: 86 Year
  Sex: Female

DRUGS (4)
  1. EXFORGE [Suspect]
     Indication: HYPERTENSION
     Dosage: 1 DF (160 MG VALS AND 10 MG AMLO), DAILY
     Route: 048
     Dates: start: 20111115, end: 20130715
  2. EXFORGE [Suspect]
     Dosage: 0.5 DF (160 MG VALS AND 10 MG AMLO), DAILY
     Route: 048
     Dates: start: 20130715
  3. EXFORGE [Suspect]
     Dosage: 1 DF, DAILY (160 MG VALS AND 5 MG AMLO)
     Dates: end: 201403
  4. STALEVO [Suspect]
     Dosage: 2 UKN, DAILY
     Dates: end: 201403

REACTIONS (7)
  - Cerebral infarction [Fatal]
  - Fall [Not Recovered/Not Resolved]
  - Hip fracture [Not Recovered/Not Resolved]
  - Senile dementia [Not Recovered/Not Resolved]
  - Metabolic disorder [Not Recovered/Not Resolved]
  - Diarrhoea [Not Recovered/Not Resolved]
  - Wrong technique in drug usage process [Not Recovered/Not Resolved]
